FAERS Safety Report 6863625-X (Version None)
Quarter: 2010Q3

REPORT INFORMATION
  Report Type: 
  Country: None (occurrence: None)
  Receive Date: 20100721
  Receipt Date: 20080305
  Transmission Date: 20110219
  Serious: No
  Sender: FDA-Public Use
  Company Number: US-PFIZER INC-2008021734

PATIENT

DRUGS (3)
  1. CHANTIX [Suspect]
     Route: 048
     Dates: start: 20071101
  2. ANTIHYPERTENSIVES [Concomitant]
     Indication: HYPERTENSION
  3. DRUG USED IN DIABETES [Concomitant]
     Indication: DIABETES MELLITUS
     Route: 048

REACTIONS (2)
  - ABNORMAL DREAMS [None]
  - INSOMNIA [None]
